FAERS Safety Report 9334742 (Version 5)
Quarter: 2016Q1

REPORT INFORMATION
  Report Type: Spontaneous
  Country: US (occurrence: US)
  Receive Date: 20130606
  Receipt Date: 20160330
  Transmission Date: 20160526
  Serious: Yes (Hospitalization, Other)
  Sender: FDA-Public Use
  Company Number: US-009507513-1305USA017102

PATIENT
  Sex: Female

DRUGS (2)
  1. FOSAMAX [Suspect]
     Active Substance: ALENDRONATE SODIUM
     Indication: OSTEOPENIA
     Dosage: 70 MG, UNKNOWN
     Route: 048
     Dates: start: 20021219
  2. ALENDRONATE SODIUM. [Suspect]
     Active Substance: ALENDRONATE SODIUM
     Indication: OSTEOPENIA
     Dosage: 70 MG, UNKNOWN
     Route: 048
     Dates: start: 20111104

REACTIONS (14)
  - Fall [Unknown]
  - Femur fracture [Unknown]
  - Calcium deficiency [Unknown]
  - Asthma [Unknown]
  - Breast cancer female [Unknown]
  - Vitamin D deficiency [Unknown]
  - Hypoaesthesia [Not Recovered/Not Resolved]
  - Hypokalaemia [Unknown]
  - Osteoarthritis [Unknown]
  - Glaucoma [Unknown]
  - Hyperlipidaemia [Unknown]
  - Blood creatinine increased [Recovered/Resolved]
  - Osteoporosis [Unknown]
  - Anaemia [Recovering/Resolving]

NARRATIVE: CASE EVENT DATE: 2002
